FAERS Safety Report 16101767 (Version 2)
Quarter: 2019Q2

REPORT INFORMATION
  Report Type: Report from Study
  Country: US (occurrence: US)
  Receive Date: 20190321
  Receipt Date: 20190404
  Transmission Date: 20190711
  Serious: Yes (Other)
  Sender: FDA-Public Use
  Company Number: US-AMGEN-USASP2019041918

PATIENT
  Age: 64 Year
  Sex: Male

DRUGS (2)
  1. REPATHA [Suspect]
     Active Substance: EVOLOCUMAB
     Indication: BLOOD CHOLESTEROL INCREASED
     Dosage: 140 MILLIGRAM, Q2WK
     Route: 065
     Dates: start: 2018, end: 201812
  2. HYDROCODONE [Concomitant]
     Active Substance: HYDROCODONE
     Indication: PAIN
     Dosage: UNK

REACTIONS (4)
  - Skin discolouration [Unknown]
  - Myocardial infarction [Unknown]
  - Blood cholesterol decreased [Unknown]
  - Sluggishness [Unknown]

NARRATIVE: CASE EVENT DATE: 201903
